FAERS Safety Report 7342512-7 (Version None)
Quarter: 2011Q1

REPORT INFORMATION
  Report Type: 
  Country: None (occurrence: None)
  Receive Date: 20110310
  Receipt Date: 20110307
  Transmission Date: 20110831
  Serious: Yes (Other)
  Sender: FDA-Public Use
  Company Number: US-PFIZER INC-2011049758

PATIENT
  Sex: Female
  Weight: 48.98 kg

DRUGS (9)
  1. LYRICA [Suspect]
     Indication: BACK DISORDER
     Dosage: 25 MG, 2X/DAY
     Dates: start: 20110209, end: 20110306
  2. TRAMADOL [Concomitant]
     Indication: PAIN
     Dosage: UNK, AS NEEDED
  3. GOLIMUMAB [Concomitant]
     Dosage: UNK
  4. VITAMIN D [Concomitant]
     Dosage: UNK
  5. LEVOXYL [Concomitant]
     Dosage: UNK
  6. CELEBREX [Concomitant]
     Dosage: UNK
  7. LYRICA [Suspect]
     Indication: MUSCULOSKELETAL DISCOMFORT
  8. VYTORIN [Concomitant]
     Dosage: UNK
  9. LANSOPRAZOLE [Concomitant]
     Dosage: UNK

REACTIONS (2)
  - INSOMNIA [None]
  - RASH GENERALISED [None]
